FAERS Safety Report 6330962-7 (Version None)
Quarter: 2009Q3

REPORT INFORMATION
  Report Type: 
  Country: None (occurrence: None)
  Receive Date: 20090827
  Receipt Date: 20090826
  Transmission Date: 20100115
  Serious: Yes (Hospitalization)
  Sender: FDA-Public Use
  Company Number: A0804543A

PATIENT
  Age: 27 Year
  Sex: Female

DRUGS (2)
  1. ALLI [Suspect]
     Indication: WEIGHT LOSS DIET
     Route: 048
     Dates: start: 20090501
  2. WOMENS MULTIVITAMIN [Concomitant]
     Indication: VITAMIN SUPPLEMENTATION
     Route: 048

REACTIONS (7)
  - ABDOMINAL DISCOMFORT [None]
  - BACK PAIN [None]
  - MALAISE [None]
  - NAUSEA [None]
  - PAIN [None]
  - RENAL DISORDER [None]
  - RENAL FAILURE ACUTE [None]
